FAERS Safety Report 25956524 (Version 1)
Quarter: 2025Q4

REPORT INFORMATION
  Report Type: Spontaneous
  Country: JP (occurrence: JP)
  Receive Date: 20251024
  Receipt Date: 20251024
  Transmission Date: 20260118
  Serious: Yes (Other)
  Sender: UCB
  Company Number: JP-UCBJ-CD202513980UCBPHAPROD

PATIENT

DRUGS (1)
  1. VIMPAT [Suspect]
     Active Substance: LACOSAMIDE
     Indication: Product used for unknown indication
     Dosage: UNK

REACTIONS (8)
  - Arrhythmia [Unknown]
  - Dizziness [Unknown]
  - Somnolence [Unknown]
  - Diplopia [Unknown]
  - Vision blurred [Unknown]
  - Agitation [Unknown]
  - Nausea [Unknown]
  - Dry mouth [Unknown]
